FAERS Safety Report 25093054 (Version 1)
Quarter: 2025Q1

REPORT INFORMATION
  Report Type: Spontaneous
  Country: NL (occurrence: NL)
  Receive Date: 20250319
  Receipt Date: 20250319
  Transmission Date: 20250409
  Serious: Yes (Death, Other)
  Sender: AUROBINDO
  Company Number: NL-LRB-01044410

PATIENT
  Age: 69 Year
  Sex: Female
  Weight: 70 kg

DRUGS (2)
  1. PERINDOPRIL [Suspect]
     Active Substance: PERINDOPRIL
     Indication: Hypertension
     Dosage: 2 MILLIGRAM, ONCE A DAY [1D1T]
     Route: 048
     Dates: start: 20250120, end: 20250213
  2. EMPAGLIFLOZIN [Suspect]
     Active Substance: EMPAGLIFLOZIN
     Indication: Disease risk factor
     Dosage: 10 MILLIGRAM, ONCE A DAY [1D1T]
     Route: 048
     Dates: start: 20230801

REACTIONS (2)
  - Pancreatitis [Fatal]
  - Abdominal discomfort [Fatal]

NARRATIVE: CASE EVENT DATE: 20250101
